FAERS Safety Report 23104332 (Version 4)
Quarter: 2024Q1

REPORT INFORMATION
  Report Type: Spontaneous
  Country: US (occurrence: US)
  Receive Date: 20231025
  Receipt Date: 20240208
  Transmission Date: 20240409
  Serious: Yes (Hospitalization)
  Sender: FDA-Public Use
  Company Number: US-SAREPTA THERAPEUTICS INC.-SRP2023-003929

PATIENT
  Sex: Male

DRUGS (1)
  1. AMONDYS 45 [Suspect]
     Active Substance: CASIMERSEN
     Indication: Product used for unknown indication
     Dosage: 2300 MILLIGRAM, WEEKLY
     Dates: start: 2021

REACTIONS (3)
  - Stenotrophomonas sepsis [Unknown]
  - Rhinovirus infection [Unknown]
  - Acute respiratory failure [Unknown]
